FAERS Safety Report 4647431-2 (Version None)
Quarter: 2005Q2

REPORT INFORMATION
  Report Type: 
  Country: None (occurrence: None)
  Receive Date: 20050426
  Receipt Date: 20050413
  Transmission Date: 20051028
  Serious: Yes (Other)
  Sender: FDA-Public Use
  Company Number: 2005059813

PATIENT
  Sex: Female

DRUGS (1)
  1. BEXTRA [Suspect]
     Indication: ILL-DEFINED DISORDER
     Dosage: (40 MG, UNKNOWN), ORAL
     Route: 048

REACTIONS (4)
  - BURNING SENSATION [None]
  - EYE PRURITUS [None]
  - PYREXIA [None]
  - SKIN EXFOLIATION [None]
